FAERS Safety Report 5445872-7 (Version None)
Quarter: 2007Q3

REPORT INFORMATION
  Report Type: 
  Country: None (occurrence: None)
  Receive Date: 20070904
  Receipt Date: 20070828
  Transmission Date: 20080115
  Serious: Yes (Death, Life-Threatening)
  Sender: FDA-Public Use
  Company Number: 430005E07ITA

PATIENT
  Age: 67 Year
  Sex: Male

DRUGS (6)
  1. NOVANTRONE [Suspect]
     Indication: ACUTE MYELOID LEUKAEMIA
     Dosage: 10 MG, INTRAVENOUS (NOT OTHERWISE SPECIFIED)
     Route: 042
     Dates: start: 20070318, end: 20070323
  2. CYTARABINE [Suspect]
     Indication: ACUTE MYELOID LEUKAEMIA
     Dosage: 150 MG, INTRAVENOUS (NOT OTHERWISE SPECIFIED)
     Route: 042
     Dates: start: 20070319, end: 20070323
  3. ETOPOSIDE [Suspect]
     Indication: ACUTE MYELOID LEUKAEMIA
     Dosage: 150 MG, INTRAVENOUS (NOT OTHERWISE SPECIFIED)
     Route: 042
     Dates: start: 20070319, end: 20070321
  4. INSULIN /00030501/ [Concomitant]
  5. BACLOFEN [Concomitant]
  6. MESALAZINE [Concomitant]

REACTIONS (26)
  - ASTHENIA [None]
  - CARDIOMYOPATHY [None]
  - CEREBRAL DISORDER [None]
  - CHOLECYSTITIS [None]
  - DIVERTICULITIS [None]
  - DIVERTICULUM [None]
  - EMPHYSEMA [None]
  - GASTROINTESTINAL DISORDER [None]
  - GASTROINTESTINAL HAEMORRHAGE [None]
  - HAEMORRHAGE [None]
  - HEPATIC FAILURE [None]
  - HYPOTENSION [None]
  - IMMUNOSUPPRESSION [None]
  - INFECTION [None]
  - LEFT VENTRICULAR HYPERTROPHY [None]
  - LIVER DISORDER [None]
  - LUNG DISORDER [None]
  - MYOCARDIAL INFARCTION [None]
  - PERITONITIS [None]
  - PLATELET COUNT DECREASED [None]
  - PULMONARY OEDEMA [None]
  - PURULENCE [None]
  - PYREXIA [None]
  - RENAL DISORDER [None]
  - SEPSIS [None]
  - WHITE BLOOD CELL COUNT DECREASED [None]
